FAERS Safety Report 8798294 (Version 3)
Quarter: 2014Q4

REPORT INFORMATION
  Report Type: Spontaneous
  Country: US (occurrence: None)
  Receive Date: 20120913
  Receipt Date: 20141215
  Transmission Date: 20150529
  Serious: Yes (Other)
  Sender: FDA-Public Use
  Company Number: JPI-P-024961

PATIENT
  Age: 39 Year
  Sex: Female
  Weight: 104.5 kg

DRUGS (8)
  1. XYREM [Suspect]
     Active Substance: SODIUM OXYBATE
     Indication: NARCOLEPSY
     Route: 048
     Dates: start: 201105
  2. XYREM [Suspect]
     Active Substance: SODIUM OXYBATE
     Indication: SOMNOLENCE
     Route: 048
     Dates: start: 201105
  3. FLUOXETINE HYDROCHLORIDE (FLUOXETINE HYDROCHLORIDE) [Concomitant]
     Active Substance: FLUOXETINE HYDROCHLORIDE
  4. GABAPENTIN. [Concomitant]
     Active Substance: GABAPENTIN
  5. FENOFIBRATE. [Concomitant]
     Active Substance: FENOFIBRATE
  6. AMPHETAMINE, DEXTROAMPHETAMINE MIXED SALTS (PSYCHOSTIMULANTS AND NOOTROPICS) [Concomitant]
  7. XYREM [Suspect]
     Active Substance: SODIUM OXYBATE
     Indication: INSOMNIA
     Route: 048
     Dates: start: 201105
  8. CONJUGATED ESTROGENS (ESTROGENS CONJUGATED) [Concomitant]

REACTIONS (2)
  - Intervertebral disc protrusion [None]
  - Vomiting [None]

NARRATIVE: CASE EVENT DATE: 201205
